FAERS Safety Report 21736199 (Version 1)
Quarter: 2022Q4

REPORT INFORMATION
  Report Type: Report from Study
  Country: JP (occurrence: JP)
  Receive Date: 20221215
  Receipt Date: 20221215
  Transmission Date: 20230112
  Serious: Yes (Hospitalization)
  Sender: FDA-Public Use
  Company Number: JP-BRISTOL-MYERS SQUIBB COMPANY-2022-151558

PATIENT
  Age: 68 Year
  Sex: Male
  Weight: 58 kg

DRUGS (29)
  1. CARBOPLATIN [Suspect]
     Active Substance: CARBOPLATIN
     Indication: Non-small cell lung cancer
     Dosage: 359.5 MG ON 26-NOV-2021 (LAST DOSE)
     Dates: start: 20210922
  2. PACLITAXEL [Suspect]
     Active Substance: PACLITAXEL
     Indication: Non-small cell lung cancer
     Dosage: 245.25 MG ON 26-NOV-2021 (LAST DOSE)
     Dates: start: 20210922
  3. METFORMIN HYDROCHLORIDE [Concomitant]
     Active Substance: METFORMIN HYDROCHLORIDE
     Indication: Diabetes mellitus
     Route: 048
     Dates: start: 20220418
  4. RISEDRONATE SODIUM HEMI-PENTAHYDRATE [Concomitant]
     Active Substance: RISEDRONATE SODIUM HEMI-PENTAHYDRATE
     Indication: Spinal fracture
     Route: 048
     Dates: start: 20220412
  5. PREDONINE [Concomitant]
     Active Substance: PREDNISOLONE
     Indication: Acute kidney injury
     Route: 048
     Dates: start: 20220418
  6. INSULIN GLARGINE [Concomitant]
     Active Substance: INSULIN GLARGINE
     Indication: Diabetes mellitus
     Dosage: 1DF=8 UNITS NOS
     Route: 058
     Dates: start: 20220418
  7. GLUFAST OD [Concomitant]
     Indication: Diabetes mellitus
     Route: 048
     Dates: start: 20220418
  8. LOXOPROFEN SODIUM DIHYDRATE [Concomitant]
     Active Substance: LOXOPROFEN SODIUM DIHYDRATE
     Indication: Product used for unknown indication
     Route: 048
     Dates: start: 2021
  9. PROCHLORPERAZINE MALEATE [Concomitant]
     Active Substance: PROCHLORPERAZINE MALEATE
     Indication: Prophylaxis
     Route: 048
     Dates: start: 2021
  10. OLANZAPINE [Concomitant]
     Active Substance: OLANZAPINE
     Indication: Prophylaxis
     Route: 048
     Dates: start: 2021
  11. CARBOCYSTEINE [Concomitant]
     Active Substance: CARBOCYSTEINE
     Indication: Prophylaxis
     Route: 048
     Dates: start: 20040104
  12. CALONAL [Concomitant]
     Active Substance: ACETAMINOPHEN
     Indication: Spinal fracture
     Route: 048
     Dates: start: 20220107
  13. CALONAL [Concomitant]
     Active Substance: ACETAMINOPHEN
     Dates: start: 20220331
  14. LOXOPROFEN [Concomitant]
     Active Substance: LOXOPROFEN
     Indication: Product used for unknown indication
     Route: 048
     Dates: start: 20220107
  15. REBAMIPIDE [Concomitant]
     Active Substance: REBAMIPIDE
     Indication: Product used for unknown indication
     Route: 048
     Dates: start: 20220107
  16. HEPARINOID [Concomitant]
     Indication: Prophylaxis
     Route: 061
     Dates: start: 20210924
  17. AMOXICILLIN [Concomitant]
     Active Substance: AMOXICILLIN
     Indication: Wound infection
     Route: 048
     Dates: start: 20220119
  18. MIYA-BM [Concomitant]
     Active Substance: CLOSTRIDIUM BUTYRICUM SPORES STRAIN M-55
     Indication: Wound infection
     Route: 048
     Dates: start: 20220119
  19. METOCLOPRAMIDE [Concomitant]
     Active Substance: METOCLOPRAMIDE
     Indication: Enterocolitis
     Route: 048
     Dates: start: 20220126
  20. SENNA [Concomitant]
     Active Substance: SENNA LEAF\SENNOSIDES\SENNOSIDES A AND B
     Indication: Constipation
     Route: 048
     Dates: start: 20210924
  21. MAGNESIUM OXIDE [Concomitant]
     Active Substance: MAGNESIUM OXIDE
     Indication: Constipation
     Route: 048
     Dates: start: 20210924
  22. MIROGABALIN BESYLATE [Concomitant]
     Active Substance: MIROGABALIN BESYLATE
     Indication: Peripheral sensory neuropathy
     Route: 048
     Dates: start: 20210925
  23. OLMESARTAN MEDOXOMIL [Concomitant]
     Active Substance: OLMESARTAN MEDOXOMIL
     Indication: Product used for unknown indication
     Route: 048
     Dates: start: 2021
  24. AZUNOL [Concomitant]
     Indication: Prophylaxis
     Dosage: 1DF=1 UNIT NOS
     Route: 061
     Dates: start: 20220329
  25. LINAGLIPTIN [Concomitant]
     Active Substance: LINAGLIPTIN
     Indication: Diabetes mellitus
     Route: 048
     Dates: start: 20220331
  26. SODIUM CHLORIDE [Concomitant]
     Active Substance: SODIUM CHLORIDE
     Indication: Hyponatraemia
     Route: 048
     Dates: start: 20220331
  27. AMLODIPINE BESYLATE [Concomitant]
     Active Substance: AMLODIPINE BESYLATE
     Indication: Product used for unknown indication
     Route: 048
     Dates: start: 2021
  28. VIDARABINE [Concomitant]
     Active Substance: VIDARABINE
     Indication: Prophylaxis
     Dosage: 1DF=1 UNITS NOS
     Route: 061
     Dates: start: 20220404
  29. SULFAMETHOXAZOLE\TRIMETHOPRIM [Concomitant]
     Active Substance: SULFAMETHOXAZOLE\TRIMETHOPRIM
     Indication: Pneumocystis jirovecii pneumonia
     Dosage: 1DF=1 UNITS NOS
     Route: 048
     Dates: start: 20220408

REACTIONS (1)
  - Gastrointestinal disorder [Not Recovered/Not Resolved]

NARRATIVE: CASE EVENT DATE: 20221201
